FAERS Safety Report 15602481 (Version 2)
Quarter: 2018Q4

REPORT INFORMATION
  Report Type: Spontaneous
  Country: SA (occurrence: SA)
  Receive Date: 20181109
  Receipt Date: 20181116
  Transmission Date: 20190205
  Serious: Yes (Other)
  Sender: FDA-Public Use
  Company Number: SA-PFIZER INC-2018454724

PATIENT
  Age: 27 Year
  Sex: Male

DRUGS (6)
  1. CYTARABINE. [Suspect]
     Active Substance: CYTARABINE
     Indication: MYCOSIS FUNGOIDES
     Dosage: UNK UNK, CYCLIC
     Dates: end: 201403
  2. VINCRISTINE SULFATE. [Suspect]
     Active Substance: VINCRISTINE SULFATE
     Indication: MYCOSIS FUNGOIDES
     Dosage: UNK, CYCLIC (4 CYCLES)
     Dates: end: 201403
  3. DOXORUBICIN HCL [Suspect]
     Active Substance: DOXORUBICIN HYDROCHLORIDE
     Indication: MYCOSIS FUNGOIDES
     Dosage: UNK UNK, CYCLIC (4 CYCLES)
     Dates: end: 201403
  4. CYCLOPHOSPHAMIDE. [Suspect]
     Active Substance: CYCLOPHOSPHAMIDE
     Indication: MYCOSIS FUNGOIDES
     Dosage: UNK, CYCLIC (4 CYCLES)
     Dates: end: 201403
  5. METHOTREXATE SODIUM. [Suspect]
     Active Substance: METHOTREXATE SODIUM
     Indication: MYCOSIS FUNGOIDES
     Dosage: UNK UNK, CYCLIC
     Dates: end: 201403
  6. DEXAMETHASONE. [Suspect]
     Active Substance: DEXAMETHASONE
     Indication: MYCOSIS FUNGOIDES
     Dosage: UNK, CYCLIC (4 CYCLES)
     Dates: end: 201403

REACTIONS (1)
  - Febrile neutropenia [Recovered/Resolved]
